FAERS Safety Report 4546487-5 (Version None)
Quarter: 2005Q1

REPORT INFORMATION
  Report Type: 
  Country: None (occurrence: None)
  Receive Date: 20050106
  Receipt Date: 20040419
  Transmission Date: 20050727
  Serious: Yes (Death, Life-Threatening, Hospitalization, Disabling, Other)
  Sender: FDA-Public Use
  Company Number: US-GLAXOSMITHKLINE-A0508430A

PATIENT
  Age: 70 Year
  Sex: Male

DRUGS (8)
  1. AVANDIA [Suspect]
     Indication: DIABETES MELLITUS NON-INSULIN-DEPENDENT
     Dosage: 4MG PER DAY
     Route: 048
     Dates: start: 20040320, end: 20040413
  2. METOPROLOL [Concomitant]
  3. COZAAR [Concomitant]
  4. IRON SULFATETHIAMIN COMPOUND TAB [Concomitant]
  5. ALLOPURINOL [Concomitant]
     Indication: DRUG USE FOR UNKNOWN INDICATION
     Dates: end: 20040101
  6. LASIX [Concomitant]
  7. PROCRIT [Concomitant]
  8. NEURONTIN [Concomitant]
     Indication: DRUG USE FOR UNKNOWN INDICATION

REACTIONS (20)
  - ANAEMIA [None]
  - ANOREXIA [None]
  - BLOOD BILIRUBIN INCREASED [None]
  - CHOLELITHIASIS [None]
  - CHOLESTASIS [None]
  - DIALYSIS [None]
  - ENCEPHALOPATHY [None]
  - HEPATIC ENZYME INCREASED [None]
  - HEPATIC FAILURE [None]
  - HEPATIC FUNCTION ABNORMAL [None]
  - HEPATIC NECROSIS [None]
  - HEPATORENAL SYNDROME [None]
  - HYPOALBUMINAEMIA [None]
  - HYPOTENSION [None]
  - INTERNATIONAL NORMALISED RATIO INCREASED [None]
  - JAUNDICE [None]
  - NAUSEA [None]
  - RENAL FAILURE ACUTE [None]
  - RENAL FAILURE CHRONIC [None]
  - RENAL NECROSIS [None]
